FAERS Safety Report 8153048-8 (Version None)
Quarter: 2012Q1

REPORT INFORMATION
  Report Type: 
  Country: None (occurrence: None)
  Receive Date: 20120221
  Receipt Date: 20120210
  Transmission Date: 20120608
  Serious: Yes (Other)
  Sender: FDA-Public Use
  Company Number: NZ-PFIZER INC-2012038408

PATIENT
  Age: 46 Year
  Sex: Female

DRUGS (6)
  1. NAPROXEN [Concomitant]
  2. OMEPRAZOLE [Concomitant]
  3. VARENICLINE TARTRATE [Suspect]
     Indication: SMOKING CESSATION THERAPY
  4. ESTRADIOL [Concomitant]
  5. NORTRIPTYLINE [Concomitant]
  6. LEVOTHYROXINE SODIUM [Concomitant]

REACTIONS (1)
  - HAEMOPTYSIS [None]
